FAERS Safety Report 6095612-6 (Version None)
Quarter: 2009Q1

REPORT INFORMATION
  Report Type: 
  Country: None (occurrence: None)
  Receive Date: 20090227
  Receipt Date: 20080507
  Transmission Date: 20090719
  Serious: No
  Sender: FDA-Public Use
  Company Number: A0726791A

PATIENT
  Age: 25 Year
  Sex: Female

DRUGS (5)
  1. LAMICTAL [Suspect]
     Indication: DRUG USE FOR UNKNOWN INDICATION
     Dosage: 100MG UNKNOWN
     Route: 048
  2. GEODON [Concomitant]
  3. ABILIFY [Concomitant]
  4. OXCARBAZEPINE [Concomitant]
  5. KLONOPIN [Concomitant]

REACTIONS (2)
  - FEELING ABNORMAL [None]
  - FEELING OF RELAXATION [None]
